FAERS Safety Report 13664150 (Version 2)
Quarter: 2017Q3

REPORT INFORMATION
  Report Type: Report from Study
  Country: JP (occurrence: JP)
  Receive Date: 20170619
  Receipt Date: 20170810
  Transmission Date: 20171127
  Serious: Yes (Other)
  Sender: FDA-Public Use
  Company Number: JP-MITSUBISHI TANABE PHARMA CORPORATION-MTPC2017-0013560

PATIENT
  Age: 70 Year
  Sex: Female
  Weight: 63 kg

DRUGS (3)
  1. RILUZOLE. [Concomitant]
     Active Substance: RILUZOLE
     Indication: AMYOTROPHIC LATERAL SCLEROSIS
     Route: 048
     Dates: start: 20170404
  2. RADICUT [Suspect]
     Active Substance: EDARAVONE
     Indication: AMYOTROPHIC LATERAL SCLEROSIS
     Route: 041
     Dates: start: 20170222, end: 20170307
  3. RADICUT [Suspect]
     Active Substance: EDARAVONE
     Route: 041
     Dates: start: 20170329, end: 20170329

REACTIONS (1)
  - Hepatic function abnormal [Recovered/Resolved]

NARRATIVE: CASE EVENT DATE: 20170329
